FAERS Safety Report 20740557 (Version 1)
Quarter: 2022Q2

REPORT INFORMATION
  Report Type: Spontaneous
  Country: US (occurrence: None)
  Receive Date: 20220422
  Receipt Date: 20220422
  Transmission Date: 20220721
  Serious: No
  Sender: FDA-Public Use
  Company Number: None

PATIENT
  Age: 60 Year
  Sex: Female
  Weight: 108 kg

DRUGS (1)
  1. AMITRIPTYLINE [Suspect]
     Active Substance: AMITRIPTYLINE
     Indication: Sleep disorder

REACTIONS (8)
  - Dyskinesia [None]
  - Pruritus [None]
  - Somnolence [None]
  - Hypersomnia [None]
  - Diarrhoea [None]
  - Cognitive disorder [None]
  - Amnesia [None]
  - Hypotonia [None]

NARRATIVE: CASE EVENT DATE: 20200418
